FAERS Safety Report 24784223 (Version 1)
Quarter: 2024Q4

REPORT INFORMATION
  Report Type: Spontaneous
  Country: JP (occurrence: JP)
  Receive Date: 20241227
  Receipt Date: 20241227
  Transmission Date: 20250115
  Serious: Yes (Hospitalization, Other)
  Sender: ELI LILLY AND COMPANY
  Company Number: JP-ELI_LILLY_AND_COMPANY-JP202411007317

PATIENT
  Age: 50 Year
  Sex: Female

DRUGS (8)
  1. VERZENIO [Suspect]
     Active Substance: ABEMACICLIB
     Indication: Breast cancer metastatic
     Dosage: 300 MG, DAILY
     Route: 048
     Dates: start: 20240926
  2. CLARITHROMYCIN [Suspect]
     Active Substance: CLARITHROMYCIN
     Indication: Paronychia
     Dosage: 400 MG
     Route: 065
     Dates: start: 20241004, end: 20241022
  3. FEMARA [Concomitant]
     Active Substance: LETROZOLE
     Indication: Breast cancer metastatic
     Dosage: 2.5 MG
     Dates: start: 20240925
  4. MIROGABALIN BESYLATE [Concomitant]
     Active Substance: MIROGABALIN BESYLATE
     Indication: Neuropathy peripheral
     Dosage: 10 MG
     Dates: start: 20240813
  5. HYDROMORPHONE HYDROCHLORIDE [Concomitant]
     Active Substance: HYDROMORPHONE HYDROCHLORIDE
     Indication: Cancer pain
     Dosage: 4 MG
     Dates: start: 20240807
  6. LOPEMIN FOR CHILDREN [Concomitant]
     Indication: Diarrhoea
     Dosage: 1 MG
     Route: 048
     Dates: start: 20240925
  7. CALCIUM CARBONATE\CHOLECALCIFEROL\MAGNESIUM CARBONATE [Concomitant]
     Active Substance: CALCIUM CARBONATE\CHOLECALCIFEROL\MAGNESIUM CARBONATE
     Indication: Hypocalcaemia
     Dosage: 2 DOSAGE FORM, DAILY
     Route: 048
     Dates: start: 20240607
  8. DENOSUMAB [Concomitant]
     Active Substance: DENOSUMAB

REACTIONS (3)
  - Shock [Recovered/Resolved]
  - Febrile neutropenia [Recovered/Resolved]
  - Paronychia [Unknown]

NARRATIVE: CASE EVENT DATE: 20241001
